FAERS Safety Report 8086750-7 (Version None)
Quarter: 2012Q1

REPORT INFORMATION
  Report Type: 
  Country: None (occurrence: None)
  Receive Date: 20120128
  Receipt Date: 20110613
  Transmission Date: 20120608
  Serious: No
  Sender: FDA-Public Use
  Company Number: US-ABBOTT-11P-163-0732023-00

PATIENT
  Age: 58 Year
  Sex: Female

DRUGS (5)
  1. FISH OIL [Concomitant]
     Indication: RHEUMATOID ARTHRITIS
     Dosage: DAILY
  2. VITAMIN TAB [Concomitant]
     Indication: RHEUMATOID ARTHRITIS
     Dosage: DAILY
  3. HUMIRA [Suspect]
     Indication: RHEUMATOID ARTHRITIS
     Dates: start: 20110415
  4. FOLIC ACID [Concomitant]
     Indication: RHEUMATOID ARTHRITIS
     Dosage: DAILY
  5. ASPIRIN [Concomitant]
     Indication: UNEVALUABLE EVENT
     Dosage: DAILY

REACTIONS (3)
  - INJECTION SITE SWELLING [None]
  - INJECTION SITE ERYTHEMA [None]
  - INJECTION SITE PRURITUS [None]
